FAERS Safety Report 8809471 (Version 2)
Quarter: 2013Q4

REPORT INFORMATION
  Report Type: Spontaneous
  Country: US (occurrence: US)
  Receive Date: 20120926
  Receipt Date: 20131007
  Transmission Date: 20140711
  Serious: No
  Sender: FDA-Public Use
  Company Number: PHEH2012US018471

PATIENT
  Sex: Female

DRUGS (9)
  1. EXELON PATCH [Suspect]
     Dosage: THE FIRST ONE
  2. EXELON PATCH [Suspect]
     Dosage: 9.5 MG (18 MG/10CM2), UNK
     Route: 062
  3. CALCIUM [Concomitant]
     Dosage: UNK UKN, UNK
  4. FISH OIL [Concomitant]
     Dosage: UNK UKN, UNK
  5. ATENOLOL [Concomitant]
     Indication: BLOOD PRESSURE
     Dosage: 50 MG, UNK
  6. ACETYLSALICYLIC ACID [Concomitant]
     Dosage: 81 MG, UNK
  7. CLARITIN [Concomitant]
     Dosage: UNK UKN, UNK
  8. OMEPRAZOLE [Concomitant]
     Dosage: 20 MG, UNK
  9. VITAMIN D3 [Concomitant]
     Dosage: UNK UKN, UNK

REACTIONS (6)
  - Application site irritation [Unknown]
  - Application site pruritus [Unknown]
  - Application site swelling [Unknown]
  - Application site erythema [Unknown]
  - Application site discolouration [Unknown]
  - Application site pain [Unknown]
